FAERS Safety Report 20082932 (Version 1)
Quarter: 2021Q4

REPORT INFORMATION
  Report Type: Spontaneous
  Country: DE (occurrence: DE)
  Receive Date: 20211117
  Receipt Date: 20211117
  Transmission Date: 20220303
  Serious: Yes (Hospitalization)
  Sender: FDA-Public Use
  Company Number: DE-ADRED-07036-02

PATIENT
  Age: 76 Year
  Sex: Male

DRUGS (10)
  1. RISPERIDONE [Suspect]
     Active Substance: RISPERIDONE
     Indication: Product used for unknown indication
     Dosage: 0.5 MG, 1-0-1-0
  2. EMPAGLIFLOZIN [Suspect]
     Active Substance: EMPAGLIFLOZIN
     Indication: Product used for unknown indication
     Dosage: 10 MG, 1-0-0-0
  3. TORSEMIDE [Concomitant]
     Active Substance: TORSEMIDE
     Dosage: 20 MG, 0-0-1-0
  4. POTASSIUM CHLORIDE [Concomitant]
     Active Substance: POTASSIUM CHLORIDE
     Dosage: 600 MG, 1-0-0-0
  5. METFORMIN\SITAGLIPTIN PHOSPHATE [Concomitant]
     Active Substance: METFORMIN\SITAGLIPTIN PHOSPHATE
     Dosage: 500|50 MG, 1-0-1-0
  6. APIXABAN [Concomitant]
     Active Substance: APIXABAN
     Dosage: 2.5 MG, 1-0-0-0
  7. INSULIN GLARGINE [Concomitant]
     Active Substance: INSULIN GLARGINE
     Dosage: SCHEMA
  8. PANTOPRAZOLE [Concomitant]
     Active Substance: PANTOPRAZOLE
     Dosage: 40 MG, 1-0-0-0
  9. BISOPROLOL [Concomitant]
     Active Substance: BISOPROLOL
     Dosage: 5 MG, 1-0-1-0
  10. ATORVASTATIN [Concomitant]
     Active Substance: ATORVASTATIN
     Dosage: 40 MG, 0-0-1-0

REACTIONS (25)
  - Hyperglycaemia [Unknown]
  - Dyspnoea [Unknown]
  - Electrocardiogram abnormal [Unknown]
  - Hypotonia [Unknown]
  - Anuria [Unknown]
  - Hypotension [Unknown]
  - Dehydration [Unknown]
  - Renal impairment [Unknown]
  - Apnoea [Unknown]
  - Systemic infection [Unknown]
  - Skin irritation [Unknown]
  - Skin pressure mark [Unknown]
  - Tachypnoea [Unknown]
  - Oedema peripheral [Unknown]
  - Bradypnoea [Unknown]
  - Electrolyte imbalance [Unknown]
  - Condition aggravated [Unknown]
  - Pupils unequal [Unknown]
  - Disorientation [Unknown]
  - Decubitus ulcer [Unknown]
  - Nuchal rigidity [Unknown]
  - General physical health deterioration [Unknown]
  - Loss of consciousness [Unknown]
  - Tachycardia [Unknown]
  - Cyanosis [Unknown]
